FAERS Safety Report 12966238 (Version 1)
Quarter: 2016Q4

REPORT INFORMATION
  Report Type: Spontaneous
  Country: US (occurrence: US)
  Receive Date: 20161122
  Receipt Date: 20161122
  Transmission Date: 20170207
  Serious: No
  Sender: FDA-Public Use
  Company Number: US-ACTELION-A-US2016-145820

PATIENT
  Age: 40 Year
  Sex: Female

DRUGS (5)
  1. VALCHLOR [Suspect]
     Active Substance: MECHLORETHAMINE
     Indication: MYCOSIS FUNGOIDES
     Dosage: UNK, TOPICAL DAILY
     Route: 061
     Dates: start: 20160520
  2. TARGRETIN [Concomitant]
     Active Substance: BEXAROTENE
     Dosage: AS DIRECTED
  3. PLAQUENIL [Concomitant]
     Active Substance: HYDROXYCHLOROQUINE SULFATE
     Dosage: AS DIRECTED
  4. MVI [Concomitant]
     Active Substance: VITAMINS
     Dosage: AS DIRECTED
  5. INTERFERON (UNSPECIFIED) [Concomitant]
     Active Substance: UNSPECIFIED INGREDIENT
     Dosage: AS DIRECTED

REACTIONS (2)
  - Application site discolouration [Unknown]
  - Application site pain [Unknown]
